FAERS Safety Report 12717259 (Version 3)
Quarter: 2016Q3

REPORT INFORMATION
  Report Type: Spontaneous
  Country: AR (occurrence: AR)
  Receive Date: 20160906
  Receipt Date: 20160906
  Transmission Date: 20161109
  Serious: Yes (Other)
  Sender: FDA-Public Use
  Company Number: PHHY2016AR121952

PATIENT
  Sex: Female

DRUGS (2)
  1. ALPLAX [Concomitant]
     Indication: PRODUCT USED FOR UNKNOWN INDICATION
     Dosage: 1 MG, UNK
     Route: 065
  2. DICLOFENAC [Suspect]
     Active Substance: DICLOFENAC
     Indication: PRODUCT USED FOR UNKNOWN INDICATION
     Route: 065

REACTIONS (13)
  - Musculoskeletal discomfort [Unknown]
  - Nervousness [Unknown]
  - Neck pain [Unknown]
  - Arterial disorder [Unknown]
  - Retinal vascular thrombosis [Unknown]
  - Visual impairment [Unknown]
  - Exostosis [Unknown]
  - Osteoarthritis [Unknown]
  - Spinal disorder [Unknown]
  - Dyspepsia [Unknown]
  - Pain [Unknown]
  - Blood pressure increased [Unknown]
  - Night blindness [Unknown]
